FAERS Safety Report 19855206 (Version 1)
Quarter: 2021Q3

REPORT INFORMATION
  Report Type: Spontaneous
  Country: FR (occurrence: FR)
  Receive Date: 20210920
  Receipt Date: 20210920
  Transmission Date: 20211014
  Serious: Yes (Hospitalization)
  Sender: FDA-Public Use
  Company Number: FR-ORGANON-O2109FRA001106

PATIENT
  Age: 63 Year
  Sex: Male
  Weight: 118 kg

DRUGS (3)
  1. BETAMETHASONE. [Suspect]
     Active Substance: BETAMETHASONE
     Dosage: 4MG QD
     Route: 048
     Dates: end: 20210809
  2. GIBITER EASYHALER [Suspect]
     Active Substance: BUDESONIDE\FORMOTEROL FUMARATE DIHYDRATE
     Indication: ASTHMA
     Dosage: 4 PUFFS PER DAY BY INHALATION
     Route: 065
  3. ASTRAZENECA COVID?19 VACCINE [Suspect]
     Active Substance: AZD-1222
     Indication: COVID-19 IMMUNISATION
     Dosage: 1 DOSAGE FORM, ONCE
     Route: 030
     Dates: start: 20210305, end: 20210507

REACTIONS (1)
  - Vaccination failure [Recovering/Resolving]

NARRATIVE: CASE EVENT DATE: 20210808
